FAERS Safety Report 5651809-8 (Version None)
Quarter: 2008Q1

REPORT INFORMATION
  Report Type: 
  Country: None (occurrence: None)
  Receive Date: 20080304
  Receipt Date: 20080206
  Transmission Date: 20080703
  Serious: Yes (Hospitalization)
  Sender: FDA-Public Use
  Company Number: 013433

PATIENT
  Age: 75 Year
  Sex: Female

DRUGS (8)
  1. PRIALT [Suspect]
     Indication: BACK PAIN
     Dosage: UG,ONCE/HOUR,INTRATHECAL
     Route: 037
  2. PRIALT [Suspect]
     Indication: FIBROMYALGIA
     Dosage: UG,ONCE/HOUR,INTRATHECAL
     Route: 037
  3. PRIALT [Suspect]
     Indication: NEUROPATHY PERIPHERAL
     Dosage: UG,ONCE/HOUR,INTRATHECAL
     Route: 037
  4. ZOLOFT [Concomitant]
  5. NEURONTIN [Concomitant]
  6. CARDIAC THERAPY [Concomitant]
  7. CHOLESTEROL (CHOLESTEROL) [Concomitant]
  8. ANTITHROMBOTIC AGENTS [Concomitant]

REACTIONS (7)
  - ABNORMAL BEHAVIOUR [None]
  - CEREBROVASCULAR ACCIDENT [None]
  - HALLUCINATION [None]
  - ISCHAEMIC STROKE [None]
  - MYOCARDIAL INFARCTION [None]
  - OVERDOSE [None]
  - WRONG TECHNIQUE IN DRUG USAGE PROCESS [None]
